FAERS Safety Report 5406766-6 (Version None)
Quarter: 2007Q3

REPORT INFORMATION
  Report Type: 
  Country: None (occurrence: None)
  Receive Date: 20070807
  Receipt Date: 20070801
  Transmission Date: 20080115
  Serious: Yes (Hospitalization)
  Sender: FDA-Public Use
  Company Number: PHRM2007FR01970

PATIENT
  Age: 58 Year
  Sex: Male

DRUGS (3)
  1. DERINOX /FRA/ [Concomitant]
  2. CRESTOR [Concomitant]
  3. GYNERGENE CAFEINE [Suspect]
     Indication: MIGRAINE

REACTIONS (2)
  - PETECHIAE [None]
  - THROMBOCYTOPENIA [None]
